FAERS Safety Report 19695959 (Version 1)
Quarter: 2021Q3

REPORT INFORMATION
  Report Type: Spontaneous
  Country: US (occurrence: US)
  Receive Date: 20210812
  Receipt Date: 20210812
  Transmission Date: 20211014
  Serious: Yes (Hospitalization)
  Sender: FDA-Public Use
  Company Number: None

PATIENT
  Age: 82 Year
  Sex: Male

DRUGS (13)
  1. ZOCOR [Concomitant]
     Active Substance: SIMVASTATIN
  2. CLARITIN [Concomitant]
     Active Substance: LORATADINE
  3. MULTI VITAMIN TAB [Concomitant]
  4. SINGULAIR [Concomitant]
     Active Substance: MONTELUKAST SODIUM
  5. BUDESONIDE. [Concomitant]
     Active Substance: BUDESONIDE
  6. DOXYCYCLINE. [Concomitant]
     Active Substance: DOXYCYCLINE
  7. OXYBUTYNIN. [Concomitant]
     Active Substance: OXYBUTYNIN CHLORIDE
  8. MEDITUSSIN SYP [Concomitant]
  9. XOLAIR [Suspect]
     Active Substance: OMALIZUMAB
     Indication: ASTHMA
     Route: 058
     Dates: start: 20160910
  10. NASONEX [Concomitant]
     Active Substance: MOMETASONE FUROATE
  11. AVODART [Concomitant]
     Active Substance: DUTASTERIDE
  12. ALBUTEROL NEB [Concomitant]
     Active Substance: ALBUTEROL
  13. CALCIUM CARB TAB [Concomitant]
     Active Substance: CALCIUM CARBONATE

REACTIONS (2)
  - Cardiac operation [None]
  - Hypersomnia [None]

NARRATIVE: CASE EVENT DATE: 20210715
